FAERS Safety Report 24061176 (Version 1)
Quarter: 2024Q3

REPORT INFORMATION
  Report Type: Spontaneous
  Country: US (occurrence: US)
  Receive Date: 20240708
  Receipt Date: 20240708
  Transmission Date: 20241017
  Serious: No
  Sender: PFIZER
  Company Number: US-PFIZER INC-PV202400088262

PATIENT
  Age: 43 Year

DRUGS (1)
  1. NURTEC ODT [Suspect]
     Active Substance: RIMEGEPANT SULFATE
     Indication: Migraine without aura
     Dosage: 1 TABLET ON THE TONGUE AND ALLOW TO DISSOLVE EVERY 2 DAYS FOR MIGRAINES AS NEEDED 90 DAYS

REACTIONS (1)
  - Blood pressure increased [Unknown]
